FAERS Safety Report 9088131 (Version 1)
Quarter: 2013Q1

REPORT INFORMATION
  Report Type: Spontaneous
  Country: GB (occurrence: GB)
  Receive Date: 20130218
  Receipt Date: 20130218
  Transmission Date: 20140127
  Serious: Yes (Other)
  Sender: FDA-Public Use
  Company Number: GB-GE HEALTHCARE MEDICAL DIAGNOSTICS-VISP-NO-1302L-0393

PATIENT
  Age: 72 Year
  Sex: Male

DRUGS (9)
  1. VISIPAQUE [Suspect]
     Indication: PRODUCT USED FOR UNKNOWN INDICATION
     Route: 042
  2. VISIPAQUE [Suspect]
     Indication: DIAGNOSTIC PROCEDURE
  3. WARFARIN [Concomitant]
  4. BUMETANIDE [Concomitant]
  5. SPIRONOLACTONE [Concomitant]
  6. RAMIPRIL [Concomitant]
  7. BISOPROLOL [Concomitant]
  8. ACETYLSALICYLIC ACID [Concomitant]
  9. SIMVASTATIN [Concomitant]

REACTIONS (1)
  - Hyperthyroidism [Recovered/Resolved]
